FAERS Safety Report 13988828 (Version 1)
Quarter: 2017Q3

REPORT INFORMATION
  Report Type: Spontaneous
  Country: US (occurrence: US)
  Receive Date: 20170919
  Receipt Date: 20170919
  Transmission Date: 20171128
  Serious: Yes (Hospitalization)
  Sender: FDA-Public Use
  Company Number: None

PATIENT
  Age: 66 Year
  Sex: Female
  Weight: 97.9 kg

DRUGS (13)
  1. LEVEMIR [Suspect]
     Active Substance: INSULIN DETEMIR
     Indication: DIABETES MELLITUS
     Route: 058
  2. BREO ELLIPTA [Concomitant]
     Active Substance: FLUTICASONE FUROATE\VILANTEROL TRIFENATATE
  3. GABAPENTIN. [Concomitant]
     Active Substance: GABAPENTIN
  4. LEVOTHYROXINE. [Concomitant]
     Active Substance: LEVOTHYROXINE
  5. IBRANCE [Concomitant]
     Active Substance: PALBOCICLIB
  6. LIVALO [Concomitant]
     Active Substance: PITAVASTATIN CALCIUM
  7. ASPIRIN 81 [Concomitant]
     Active Substance: ASPIRIN
  8. LETROZOLE. [Concomitant]
     Active Substance: LETROZOLE
  9. ESOMEPRAZOLE [Concomitant]
     Active Substance: ESOMEPRAZOLE
  10. TAMOXIFEN [Concomitant]
     Active Substance: TAMOXIFEN
  11. HUMALOG [Suspect]
     Active Substance: INSULIN LISPRO
     Indication: DIABETES MELLITUS
     Dosage: OTHER FREQUENCY:ACHS;?
     Route: 058
  12. CLONAZEPAM. [Concomitant]
     Active Substance: CLONAZEPAM
  13. BYSTOLIC [Concomitant]
     Active Substance: NEBIVOLOL HYDROCHLORIDE

REACTIONS (3)
  - Hypophagia [None]
  - Blood glucose decreased [None]
  - Syncope [None]

NARRATIVE: CASE EVENT DATE: 20170827
